FAERS Safety Report 7967648-9 (Version None)
Quarter: 2011Q4

REPORT INFORMATION
  Report Type: 
  Country: None (occurrence: None)
  Receive Date: 20111209
  Receipt Date: 20111129
  Transmission Date: 20120403
  Serious: Yes (Hospitalization, Other)
  Sender: FDA-Public Use
  Company Number: US-BAYER-201036649NA

PATIENT
  Age: 20 Year
  Sex: Female
  Weight: 100 kg

DRUGS (12)
  1. YAZ [Suspect]
     Dosage: UNK
     Dates: end: 20091108
  2. ADVAIR DISKUS 100/50 [Concomitant]
  3. MIDODRINE HYDROCHLORIDE [Concomitant]
  4. XOPENEX [Concomitant]
  5. TRIAM [Concomitant]
  6. YAZ [Suspect]
     Dosage: UNK
     Dates: start: 20090101, end: 20090501
  7. PROAIR HFA [Concomitant]
  8. YAZ [Suspect]
     Dosage: UNK
     Dates: start: 20090801, end: 20091001
  9. COMBIVENT [Concomitant]
  10. POTASSIUM CHLORIDE [Concomitant]
  11. YAZ [Suspect]
     Indication: CONTRACEPTION
     Dosage: UNK UNK, UNK
     Route: 048
     Dates: start: 20080201, end: 20081201
  12. METFORMIN HCL [Concomitant]
     Indication: TYPE 2 DIABETES MELLITUS

REACTIONS (7)
  - MYOCARDIAL INFARCTION [None]
  - ANXIETY [None]
  - CEREBROVASCULAR ACCIDENT [None]
  - FEAR OF DEATH [None]
  - MENTAL DISORDER [None]
  - DEPRESSION [None]
  - EMOTIONAL DISTRESS [None]
